FAERS Safety Report 5990091-9 (Version None)
Quarter: 2008Q4

REPORT INFORMATION
  Report Type: 
  Country: None (occurrence: None)
  Receive Date: 20081211
  Receipt Date: 20081205
  Transmission Date: 20090506
  Serious: Yes (Disabling, Other)
  Sender: FDA-Public Use
  Company Number: US-JNJFOC-20080104991

PATIENT
  Sex: Female
  Weight: 67.13 kg

DRUGS (4)
  1. LEVAQUIN [Suspect]
     Indication: BRONCHITIS
     Route: 048
  2. PREDNISONE TAB [Concomitant]
     Indication: LOWER RESPIRATORY TRACT INFLAMMATION
     Route: 048
  3. CYMBALTA [Concomitant]
     Indication: DEPRESSION
     Route: 048
  4. MS CONTIN [Concomitant]
     Indication: PAIN
     Route: 048

REACTIONS (6)
  - IMPAIRED WORK ABILITY [None]
  - MENISCUS LESION [None]
  - PATELLOFEMORAL PAIN SYNDROME [None]
  - PLANTAR FASCIITIS [None]
  - QUALITY OF LIFE DECREASED [None]
  - TENDONITIS [None]
